FAERS Safety Report 23105466 (Version 1)
Quarter: 2023Q4

REPORT INFORMATION
  Report Type: Spontaneous
  Country: US (occurrence: None)
  Receive Date: 20231023
  Receipt Date: 20231023
  Transmission Date: 20240109
  Serious: Yes (Hospitalization)
  Sender: FDA-Public Use
  Company Number: None

PATIENT
  Age: 72 Year
  Sex: Male
  Weight: 101 kg

DRUGS (1)
  1. VICTOZA [Suspect]
     Active Substance: LIRAGLUTIDE
     Dosage: OTHER STRENGTH : 6MG/ML, 3L;?FREQUENCY : DAILY;?
     Route: 048
     Dates: start: 20200206, end: 20230210

REACTIONS (7)
  - Abdominal pain [None]
  - Pain [None]
  - Vomiting [None]
  - Nausea [None]
  - Diarrhoea [None]
  - Impaired gastric emptying [None]
  - Therapy cessation [None]

NARRATIVE: CASE EVENT DATE: 20230210
